FAERS Safety Report 9438582 (Version 1)
Quarter: 2013Q3

REPORT INFORMATION
  Report Type: Spontaneous
  Country: US (occurrence: US)
  Receive Date: 20130802
  Receipt Date: 20130802
  Transmission Date: 20140515
  Serious: Yes (Other)
  Sender: FDA-Public Use
  Company Number: US-TEVA-422515USA

PATIENT
  Sex: 0
  Weight: 1.42 kg

DRUGS (3)
  1. DOXORUBICIN NOS [Suspect]
     Indication: BREAST CANCER STAGE II
     Route: 064
  2. PACLITAXEL [Suspect]
     Indication: BREAST CANCER STAGE II
     Route: 064
  3. CYCLOPHOSPHAMIDE [Suspect]
     Indication: BREAST CANCER STAGE II
     Route: 064

REACTIONS (6)
  - Apnoea neonatal [Unknown]
  - Neonatal respiratory distress syndrome [Unknown]
  - Gastrooesophageal reflux disease [Unknown]
  - Foetal exposure during pregnancy [Recovered/Resolved]
  - Selective IgA immunodeficiency [Unknown]
  - Constipation [Unknown]
